FAERS Safety Report 19512300 (Version 2)
Quarter: 2021Q3

REPORT INFORMATION
  Report Type: Spontaneous
  Country: US (occurrence: US)
  Receive Date: 20210709
  Receipt Date: 20210819
  Transmission Date: 20211014
  Serious: No
  Sender: FDA-Public Use
  Company Number: US-ELI_LILLY_AND_COMPANY-US202107003158

PATIENT
  Age: 4 Year
  Sex: Female

DRUGS (1)
  1. OLUMIANT [Suspect]
     Active Substance: BARICITINIB
     Indication: JUVENILE IDIOPATHIC ARTHRITIS
     Dosage: 2 MG, TID
     Route: 048
     Dates: start: 20210707

REACTIONS (3)
  - Off label use [Unknown]
  - Abdominal discomfort [Unknown]
  - Prescribed overdose [Unknown]

NARRATIVE: CASE EVENT DATE: 20210707
